FAERS Safety Report 15207616 (Version 2)
Quarter: 2018Q3

REPORT INFORMATION
  Report Type: Spontaneous
  Country: FR (occurrence: FR)
  Receive Date: 20180727
  Receipt Date: 20180727
  Transmission Date: 20181010
  Serious: Yes (Other)
  Sender: FDA-Public Use
  Company Number: PHHY2018FR037799

PATIENT
  Age: 36 Year
  Sex: Female

DRUGS (6)
  1. LAPATINIB [Suspect]
     Active Substance: LAPATINIB
     Indication: ADENOCARCINOMA
     Dosage: UNK
     Route: 065
  2. AMOXICILLIN. [Suspect]
     Active Substance: AMOXICILLIN
     Indication: PRODUCT USED FOR UNKNOWN INDICATION
     Dosage: UNK
     Route: 065
  3. FUNGIZONE [Suspect]
     Active Substance: AMPHOTERICIN B
     Indication: ORAL CANDIDIASIS
     Dosage: UNK
     Route: 062
  4. PEMBROLIZUMAB. [Suspect]
     Active Substance: PEMBROLIZUMAB
     Indication: METASTATIC NEOPLASM
     Dosage: 200 MG, QW3
     Route: 065
     Dates: start: 201603
  5. LAPATINIB [Suspect]
     Active Substance: LAPATINIB
     Indication: METASTASES TO LUNG
  6. LAPATINIB [Suspect]
     Active Substance: LAPATINIB
     Indication: METASTASES TO ADRENALS

REACTIONS (8)
  - Rash [Recovering/Resolving]
  - Dry mouth [Recovering/Resolving]
  - Product use in unapproved indication [Unknown]
  - Dry eye [Recovering/Resolving]
  - Malignant neoplasm progression [Unknown]
  - Conjunctival hyperaemia [Recovering/Resolving]
  - Sjogren^s syndrome [Recovering/Resolving]
  - Metastases to adrenals [Unknown]

NARRATIVE: CASE EVENT DATE: 201603
